FAERS Safety Report 25824529 (Version 5)
Quarter: 2025Q4

REPORT INFORMATION
  Report Type: Spontaneous
  Country: US (occurrence: US)
  Receive Date: 20250919
  Receipt Date: 20251106
  Transmission Date: 20260117
  Serious: No
  Sender: PFIZER
  Company Number: US-PFIZER INC-202500179983

PATIENT
  Age: 18 Year
  Sex: Female

DRUGS (1)
  1. GENOTROPIN [Suspect]
     Active Substance: SOMATROPIN
     Indication: Short stature
     Dosage: 1 MG, DAILY, 7 DAYS PER WEEK
     Route: 058

REACTIONS (2)
  - Device mechanical issue [Unknown]
  - Device issue [Unknown]
